FAERS Safety Report 8247040-2 (Version None)
Quarter: 2012Q1

REPORT INFORMATION
  Report Type: 
  Country: None (occurrence: None)
  Receive Date: 20120330
  Receipt Date: 20120227
  Transmission Date: 20120608
  Serious: Yes (Other)
  Sender: FDA-Public Use
  Company Number: US-ROCHE-1024450

PATIENT
  Sex: Male
  Weight: 86 kg

DRUGS (6)
  1. HYDROXYZINE [Concomitant]
     Indication: PRURITUS
     Dosage: 3-4 /DAY.
     Route: 048
     Dates: start: 20111006, end: 20111221
  2. ZOLOFT [Concomitant]
     Indication: DEPRESSION
     Dates: start: 20110311
  3. PEGASYS [Suspect]
     Indication: HEPATITIS C
     Route: 058
     Dates: start: 20111117
  4. INCIVEK [Concomitant]
     Indication: HEPATITIS C
     Route: 048
  5. PROCRIT [Concomitant]
     Indication: HAEMOLYTIC ANAEMIA
     Route: 058
     Dates: start: 20110808, end: 20111123
  6. RIBAVIRIN [Concomitant]
     Route: 048
     Dates: start: 20111111, end: 20111101

REACTIONS (5)
  - MALAISE [None]
  - HEADACHE [None]
  - HAEMOGLOBIN DECREASED [None]
  - EYE PAIN [None]
  - RETINAL HAEMORRHAGE [None]
